FAERS Safety Report 9921652 (Version 3)
Quarter: 2016Q4

REPORT INFORMATION
  Report Type: Report from Study
  Country: FR (occurrence: FR)
  Receive Date: 20140225
  Receipt Date: 20161216
  Transmission Date: 20170207
  Serious: Yes (Hospitalization)
  Sender: FDA-Public Use
  Company Number: FR-ASTELLAS-2014EU001497

PATIENT
  Age: 47 Year
  Sex: Male

DRUGS (5)
  1. CEFTRIAXONE                        /00672202/ [Concomitant]
     Active Substance: CEFTRIAXONE
     Indication: STRONGYLOIDIASIS
     Dosage: UNK UNK, UNKNOWN FREQ.
     Route: 065
  2. IVERMECTIN. [Concomitant]
     Active Substance: IVERMECTIN
     Indication: STRONGYLOIDIASIS
     Dosage: UNK UNK, UNKNOWN FREQ.
     Route: 065
  3. MYFORTIC [Suspect]
     Active Substance: MYCOPHENOLATE SODIUM
     Indication: PROPHYLAXIS AGAINST TRANSPLANT REJECTION
     Dosage: UNK UNK, UNKNOWN FREQ.
     Route: 048
     Dates: start: 20140125
  4. TACROLIMUS. [Suspect]
     Active Substance: TACROLIMUS
     Indication: PROPHYLAXIS AGAINST TRANSPLANT REJECTION
     Dosage: UNK UNK, UNKNOWN FREQ.
     Route: 048
     Dates: start: 20140125
  5. CORTANCYL [Suspect]
     Active Substance: PREDNISONE
     Indication: PROPHYLAXIS AGAINST TRANSPLANT REJECTION
     Dosage: UNK UNK, UNKNOWN FREQ.
     Route: 048
     Dates: start: 20140125

REACTIONS (1)
  - Prostatitis [Recovered/Resolved]

NARRATIVE: CASE EVENT DATE: 20140204
